FAERS Safety Report 8361828-9 (Version None)
Quarter: 2012Q2

REPORT INFORMATION
  Report Type: 
  Country: None (occurrence: None)
  Receive Date: 20120515
  Receipt Date: 20120507
  Transmission Date: 20120825
  Serious: Yes (Other)
  Sender: FDA-Public Use
  Company Number: JP-GLAXOSMITHKLINE-B0800908A

PATIENT
  Sex: Female

DRUGS (11)
  1. PAXIL [Suspect]
     Indication: DEPRESSION
     Dosage: 10MG PER DAY
     Route: 048
  2. PAXIL [Suspect]
     Dosage: 30MG PER DAY
     Route: 048
  3. VALPROATE SODIUM [Concomitant]
     Indication: EPILEPSY
     Dosage: 600MG PER DAY
     Route: 048
  4. ZOLOFT [Concomitant]
     Dosage: 50MG PER DAY
     Route: 048
  5. ZONISAMIDE [Concomitant]
     Dosage: 200MG PER DAY
     Route: 048
  6. PAXIL [Suspect]
     Dosage: 10MG PER DAY
     Route: 048
  7. VALPROATE SODIUM [Concomitant]
     Dosage: 800MG PER DAY
     Route: 048
  8. ALPRAZOLAM [Concomitant]
     Dosage: .4MG PER DAY
     Route: 048
  9. ZOLOFT [Concomitant]
     Indication: DEPRESSION
     Dosage: 25MG PER DAY
     Route: 048
  10. PAXIL [Suspect]
     Dosage: 20MG PER DAY
     Route: 048
  11. PAXIL [Suspect]
     Dosage: 20MG PER DAY
     Route: 048

REACTIONS (4)
  - MALAISE [None]
  - APATHY [None]
  - AMIMIA [None]
  - DECREASED INTEREST [None]
